FAERS Safety Report 12172845 (Version 1)
Quarter: 2016Q1

REPORT INFORMATION
  Report Type: Spontaneous
  Country: US (occurrence: US)
  Receive Date: 20160311
  Receipt Date: 20160311
  Transmission Date: 20160526
  Serious: No
  Sender: FDA-Public Use
  Company Number: US-PFIZER INC-2016061471

PATIENT
  Sex: Female

DRUGS (29)
  1. IRON [Suspect]
     Active Substance: IRON
     Dosage: UNK
  2. SINGULAIR [Suspect]
     Active Substance: MONTELUKAST SODIUM
     Dosage: UNK
  3. DOLOBID [Suspect]
     Active Substance: DIFLUNISAL
     Dosage: UNK
  4. PERCOLONE [Suspect]
     Active Substance: OXYCODONE HYDROCHLORIDE
     Dosage: UNK
  5. VANCOMYCIN HCL [Suspect]
     Active Substance: VANCOMYCIN HYDROCHLORIDE
     Dosage: UNK
  6. LISINOPRIL. [Suspect]
     Active Substance: LISINOPRIL
     Dosage: UNK
  7. Z-PACK [Suspect]
     Active Substance: AZITHROMYCIN DIHYDRATE
     Dosage: UNK
  8. AZMACORT [Suspect]
     Active Substance: TRIAMCINOLONE ACETONIDE
     Dosage: UNK
  9. ASA [Suspect]
     Active Substance: ASPIRIN
     Dosage: UNK
  10. NABUMETONE. [Suspect]
     Active Substance: NABUMETONE
     Dosage: UNK
  11. METOPROLOL TARTRATE. [Suspect]
     Active Substance: METOPROLOL TARTRATE
     Dosage: UNK
  12. KEFLEX [Suspect]
     Active Substance: CEPHALEXIN
     Dosage: UNK
  13. BENADRYL [Suspect]
     Active Substance: DIPHENHYDRAMINE HYDROCHLORIDE
     Dosage: UNK
  14. PERCOCET [Suspect]
     Active Substance: ACETAMINOPHEN\OXYCODONE HYDROCHLORIDE
     Dosage: UNK
  15. DARVOCET [Suspect]
     Active Substance: ACETAMINOPHEN\PROPOXYPHENE HYDROCHLORIDE
     Dosage: UNK
  16. AMOXICILLIN. [Suspect]
     Active Substance: AMOXICILLIN
     Dosage: UNK
  17. DIOVAN [Suspect]
     Active Substance: VALSARTAN
     Dosage: UNK
  18. FLOVENT [Suspect]
     Active Substance: FLUTICASONE PROPIONATE
     Dosage: UNK
  19. COMPAZINE [Suspect]
     Active Substance: PROCHLORPERAZINE MALEATE
     Dosage: UNK
  20. CODEINE [Suspect]
     Active Substance: CODEINE
     Dosage: UNK
  21. AVELOX [Suspect]
     Active Substance: MOXIFLOXACIN HYDROCHLORIDE
     Dosage: UNK
  22. NAPROXEN. [Suspect]
     Active Substance: NAPROXEN
     Dosage: UNK
  23. OSA [Suspect]
     Active Substance: DEXPANTHENOL\LIDOCAINE\SALICYLAMIDE
     Dosage: UNK
  24. GUANFACINE. [Suspect]
     Active Substance: GUANFACINE
     Dosage: UNK
  25. LORTAB [Suspect]
     Active Substance: ACETAMINOPHEN\HYDROCODONE BITARTRATE
     Dosage: UNK
  26. HCTZ [Suspect]
     Active Substance: HYDROCHLOROTHIAZIDE
     Dosage: UNK
  27. HYDRALAZINE W/HYDROCHLOROTHIAZIDE/RESERPINE [Suspect]
     Active Substance: HYDRALAZINE\HYDROCHLOROTHIAZIDE\RESERPINE
     Dosage: UNK
  28. MORPHINE SULFATE. [Suspect]
     Active Substance: MORPHINE SULFATE
     Dosage: UNK
  29. CIPROFLOXACIN. [Suspect]
     Active Substance: CIPROFLOXACIN
     Dosage: UNK

REACTIONS (1)
  - Drug hypersensitivity [Unknown]
